FAERS Safety Report 11020193 (Version 1)
Quarter: 2015Q2

REPORT INFORMATION
  Report Type: Report from Study
  Country: CL (occurrence: CL)
  Receive Date: 20150413
  Receipt Date: 20150413
  Transmission Date: 20150821
  Serious: Yes (Other)
  Sender: FDA-Public Use
  Company Number: CL-ROCHE-1561895

PATIENT
  Age: 34 Year
  Sex: Male
  Weight: 88 kg

DRUGS (2)
  1. PEGASYS [Suspect]
     Active Substance: PEGINTERFERON ALFA-2A
     Indication: HEPATITIS C
     Route: 058
     Dates: start: 20141212, end: 20150401
  2. RIBAVIRIN. [Suspect]
     Active Substance: RIBAVIRIN
     Indication: HEPATITIS C
     Route: 048
     Dates: start: 20141212, end: 20150401

REACTIONS (2)
  - Viral load increased [Not Recovered/Not Resolved]
  - Thyroid function test abnormal [Not Recovered/Not Resolved]

NARRATIVE: CASE EVENT DATE: 201503
